FAERS Safety Report 12360481 (Version 2)
Quarter: 2016Q3

REPORT INFORMATION
  Report Type: Spontaneous
  Country: IT (occurrence: IT)
  Receive Date: 20160512
  Receipt Date: 20160704
  Transmission Date: 20161109
  Serious: Yes (Disabling, Other)
  Sender: FDA-Public Use
  Company Number: IT-PFIZER INC-2016237926

PATIENT
  Sex: Female

DRUGS (1)
  1. PREGABALIN. [Suspect]
     Active Substance: PREGABALIN
     Indication: NEUROPATHY PERIPHERAL
     Dosage: 75 MG, DAILY
     Route: 048
     Dates: start: 20160408, end: 20160408

REACTIONS (14)
  - Somnolence [Recovering/Resolving]
  - Arthralgia [Recovering/Resolving]
  - Nasal dryness [Recovering/Resolving]
  - Hyperhidrosis [Recovering/Resolving]
  - Eye swelling [Recovering/Resolving]
  - Vision blurred [Recovering/Resolving]
  - Memory impairment [Recovering/Resolving]
  - Depression [Recovering/Resolving]
  - Peripheral swelling [Recovering/Resolving]
  - Dry eye [Recovering/Resolving]
  - Suicidal ideation [Recovering/Resolving]
  - Dry mouth [Recovering/Resolving]
  - Joint swelling [Recovering/Resolving]
  - Eyelid oedema [Recovering/Resolving]

NARRATIVE: CASE EVENT DATE: 20160408
